FAERS Safety Report 5882621-2 (Version None)
Quarter: 2008Q3

REPORT INFORMATION
  Report Type: 
  Country: None (occurrence: None)
  Receive Date: 20080913
  Receipt Date: 20080808
  Transmission Date: 20090109
  Serious: No
  Sender: FDA-Public Use
  Company Number: US-ABBOTT-08P-163-0469864-00

PATIENT
  Sex: Female
  Weight: 40.406 kg

DRUGS (3)
  1. HUMIRA [Suspect]
     Indication: JUVENILE ARTHRITIS
     Route: 058
     Dates: start: 20040101, end: 20070101
  2. BIRTH CONTROL [Suspect]
     Indication: CONTRACEPTION
     Dates: end: 20080201
  3. PREDNISONE TAB [Concomitant]
     Indication: PAIN
     Route: 048
     Dates: start: 20080201

REACTIONS (3)
  - PAIN [None]
  - VAGINAL HAEMORRHAGE [None]
  - VAGINITIS BACTERIAL [None]
